FAERS Safety Report 10035185 (Version 1)
Quarter: 2014Q1

REPORT INFORMATION
  Report Type: Spontaneous
  Country: US (occurrence: None)
  Receive Date: 20140306
  Receipt Date: 20140306
  Transmission Date: 20141002
  Serious: Yes (Other)
  Sender: FDA-Public Use
  Company Number: 163-21880-13123808

PATIENT
  Age: 56 Year
  Sex: Female
  Weight: 89.8 kg

DRUGS (6)
  1. REVLIMID (LENALIDOMIDE) (25 MILLIGRAM, CAPSULES) [Suspect]
     Indication: PLASMA CELL MYELOMA
     Route: 048
     Dates: start: 201007
  2. PREMARIN (ESTROGENS CONJUGATED) [Concomitant]
  3. GABAPENTIN (GABAPENTIN) [Concomitant]
  4. CENTRUM (CENTRUM) (TABLETS) [Concomitant]
  5. LISINOPRIL (LISINOPRIL) [Concomitant]
  6. ASPIRIN (ACETYLSALICYLIC ACID) [Concomitant]

REACTIONS (2)
  - Pneumonia [None]
  - Drug dose omission [None]
